FAERS Safety Report 12826443 (Version 1)
Quarter: 2016Q4

REPORT INFORMATION
  Report Type: Spontaneous
  Country: US (occurrence: US)
  Receive Date: 20161007
  Receipt Date: 20161007
  Transmission Date: 20170207
  Serious: No
  Sender: FDA-Public Use
  Company Number: US-WATSON-2016-07942

PATIENT
  Age: 67 Year
  Sex: Male

DRUGS (1)
  1. FENTANYL-25 (WATSON LABORATORIES) [Suspect]
     Active Substance: FENTANYL
     Indication: PAIN
     Dosage: 25 MCG, Q1H
     Route: 062
     Dates: start: 20160330

REACTIONS (14)
  - Dysarthria [Not Recovered/Not Resolved]
  - Hallucination [Recovered/Resolved]
  - Diarrhoea [Recovered/Resolved]
  - Accidental overdose [Unknown]
  - Application site pain [Recovered/Resolved]
  - Hypertension [Recovered/Resolved]
  - Hypotension [Not Recovered/Not Resolved]
  - Respiratory rate decreased [Recovered/Resolved]
  - Somnolence [Not Recovered/Not Resolved]
  - Withdrawal syndrome [Not Recovered/Not Resolved]
  - Confusional state [Not Recovered/Not Resolved]
  - Nightmare [Recovering/Resolving]
  - Ocular hyperaemia [Recovering/Resolving]
  - Feeling abnormal [Not Recovered/Not Resolved]

NARRATIVE: CASE EVENT DATE: 20160330
